FAERS Safety Report 6360180 (Version 26)
Quarter: 2014Q2

REPORT INFORMATION
  Report Type: Spontaneous
  Country: US (occurrence: US)
  Receive Date: 20070718
  Receipt Date: 20140509
  Transmission Date: 20141212
  Serious: Yes (Death, Other)
  Sender: FDA-Public Use
  Company Number: PHEH2007US09930

PATIENT
  Age: 56 Year
  Sex: Male

DRUGS (26)
  1. AREDIA [Suspect]
     Indication: HYPERCALCAEMIA OF MALIGNANCY
     Dosage: 90 MG, QMO
     Dates: start: 1999
  2. AREDIA [Suspect]
     Indication: PLASMA CELL MYELOMA
     Dosage: 90 MG,
     Dates: start: 200209
  3. ZOMETA [Suspect]
     Indication: PLASMA CELL MYELOMA
     Dosage: 4 MG, QMO
     Route: 042
     Dates: end: 2007
  4. DECADRON [Concomitant]
  5. MELPHALAN [Concomitant]
     Dosage: 10 MG, DAILY
  6. DOXIL [Concomitant]
     Dates: end: 200810
  7. CYTOXAN [Concomitant]
     Dates: end: 200812
  8. PREDNISONE [Concomitant]
     Dosage: 60 MG,  FOR 7 DAYS, FOLLOWED BY 20 MG EVERY OTHER DAY
     Dates: end: 200812
  9. BACTRIM [Concomitant]
     Indication: PROPHYLAXIS
  10. LEVAQUIN [Concomitant]
     Dates: end: 20090115
  11. OXYCODONE [Concomitant]
  12. PERCOCET [Concomitant]
     Dosage: 1 DF, (5/325 AS NEEDED)
  13. ONDANSETRON [Concomitant]
  14. OMEPRAZOLE [Concomitant]
  15. SINGULAIR [Concomitant]
  16. FORADIL                                 /USA/ [Concomitant]
  17. ASMANEX [Concomitant]
     Dosage: 220 UG,
     Route: 055
  18. SUDAFED [Concomitant]
     Indication: SINUS CONGESTION
  19. BENADRYL ^ACHE^ [Concomitant]
     Indication: SINUS CONGESTION
  20. METHADONE [Concomitant]
     Dosage: 50 MG, Q8H
     Route: 048
  21. FLUNISOLIDE [Concomitant]
     Route: 045
  22. ALBUTEROL [Concomitant]
  23. DEXAMETHASONE [Concomitant]
     Dosage: 40 MG,  /DAY 1-4 OF EVERY 28 DAY CYCLE
     Dates: start: 20070202
  24. THALIDOMIDE [Concomitant]
  25. ARANESP [Concomitant]
  26. PROCRIT                            /00909301/ [Concomitant]

REACTIONS (85)
  - Death [Fatal]
  - Compression fracture [Unknown]
  - Walking aid user [Unknown]
  - Respiratory distress [Recovering/Resolving]
  - Respiratory failure [Unknown]
  - Pneumonia [Unknown]
  - Emphysema [Unknown]
  - Hydronephrosis [Unknown]
  - Osteonecrosis of jaw [Unknown]
  - Pain [Unknown]
  - Infection [Unknown]
  - Deformity [Unknown]
  - Bone disorder [Unknown]
  - Hypophagia [Unknown]
  - Emotional distress [Unknown]
  - Anxiety [Unknown]
  - Pain in jaw [Unknown]
  - Facial pain [Unknown]
  - Sternal fracture [Unknown]
  - Tooth infection [Unknown]
  - Osteopenia [Unknown]
  - Anaemia [Unknown]
  - Osteoporosis [Unknown]
  - Arthritis [Unknown]
  - Back pain [Unknown]
  - Musculoskeletal chest pain [Unknown]
  - Nephrolithiasis [Unknown]
  - Cough [Unknown]
  - Interstitial lung disease [Unknown]
  - Kyphosis [Unknown]
  - Blood immunoglobulin G increased [Unknown]
  - Bone lesion [Unknown]
  - Calculus ureteric [Unknown]
  - Gait disturbance [Unknown]
  - Arthralgia [Unknown]
  - Hypersensitivity [Unknown]
  - Monoclonal immunoglobulin present [Unknown]
  - Dyspnoea [Not Recovered/Not Resolved]
  - Tooth loss [Unknown]
  - Tooth fracture [Unknown]
  - Tooth abscess [Unknown]
  - Myalgia [Unknown]
  - Abdominal pain upper [Unknown]
  - Bone swelling [Unknown]
  - Rib fracture [Unknown]
  - Hypoxia [Unknown]
  - Hepatic calcification [Unknown]
  - Bronchial hyperreactivity [Unknown]
  - Hypogonadism [Unknown]
  - Aortic calcification [Unknown]
  - Aortic disorder [Unknown]
  - Pulmonary embolism [Unknown]
  - Haematuria [Unknown]
  - Tendon calcification [Unknown]
  - Spinal osteoarthritis [Unknown]
  - Intervertebral disc space narrowing [Unknown]
  - Vertebral osteophyte [Unknown]
  - Scoliosis [Unknown]
  - Pulmonary fibrosis [Unknown]
  - Leukopenia [Unknown]
  - Upper respiratory tract infection [Unknown]
  - Chest pain [Unknown]
  - Osteolysis [Unknown]
  - Upper-airway cough syndrome [Unknown]
  - Depression [Unknown]
  - Contusion [Unknown]
  - Bronchitis chronic [Unknown]
  - Ecchymosis [Unknown]
  - Chronic obstructive pulmonary disease [Unknown]
  - Oedema peripheral [Unknown]
  - Bone pain [Unknown]
  - Intervertebral disc disorder [Unknown]
  - Aortic arteriosclerosis [Unknown]
  - Insomnia [Unknown]
  - Rhinitis allergic [Unknown]
  - Rales [Unknown]
  - Oesophageal mass [Unknown]
  - Benign prostatic hyperplasia [Unknown]
  - Gout [Unknown]
  - Hernia [Unknown]
  - Constipation [Unknown]
  - Hypovolaemia [Unknown]
  - Osteosclerosis [Unknown]
  - Spinal fracture [Unknown]
  - Pain in extremity [Unknown]
